FAERS Safety Report 9386789 (Version 1)
Quarter: 2013Q3

REPORT INFORMATION
  Report Type: Report from Study
  Country: AU (occurrence: AU)
  Receive Date: 20130708
  Receipt Date: 20130708
  Transmission Date: 20140515
  Serious: Yes (Hospitalization, Disabling, Other)
  Sender: FDA-Public Use
  Company Number: AU-ROCHE-1222829

PATIENT
  Age: 55 Year
  Sex: Male

DRUGS (1)
  1. ACTEMRA [Suspect]
     Indication: RHEUMATOID ARTHRITIS
     Route: 042
     Dates: start: 20130321, end: 20130509

REACTIONS (3)
  - Lower respiratory tract infection [Recovered/Resolved]
  - Emphysema [Recovered/Resolved]
  - Visual impairment [Not Recovered/Not Resolved]
